FAERS Safety Report 6411384-7 (Version None)
Quarter: 2009Q4

REPORT INFORMATION
  Report Type: 
  Country: None (occurrence: None)
  Receive Date: 20091023
  Receipt Date: 20091013
  Transmission Date: 20100525
  Serious: Yes (Death)
  Sender: FDA-Public Use
  Company Number: HQWYE152706MAR06

PATIENT
  Sex: Male
  Weight: 74.91 kg

DRUGS (5)
  1. EFFEXOR [Suspect]
  2. ACTONEL [Concomitant]
  3. MOTRIN [Concomitant]
  4. NORCO [Concomitant]
  5. FENTANYL-100 [Concomitant]
     Route: 062

REACTIONS (2)
  - COMPLETED SUICIDE [None]
  - GUN SHOT WOUND [None]
